FAERS Safety Report 7141649-5 (Version None)
Quarter: 2010Q4

REPORT INFORMATION
  Report Type: 
  Country: None (occurrence: None)
  Receive Date: 20101207
  Receipt Date: 20101201
  Transmission Date: 20110411
  Serious: Yes (Other)
  Sender: FDA-Public Use
  Company Number: GB-BAXTER-2010BH029310

PATIENT
  Age: 30 Year
  Sex: Female
  Weight: 100 kg

DRUGS (2)
  1. GAMMAGARD LIQUID [Suspect]
     Indication: HYPOGAMMAGLOBULINAEMIA
     Route: 042
     Dates: start: 20101130, end: 20101130
  2. THYROXIN [Concomitant]
     Indication: HYPERTHYROIDISM
     Route: 048

REACTIONS (4)
  - COLD SWEAT [None]
  - DIZZINESS [None]
  - FEELING COLD [None]
  - SYNCOPE [None]
